FAERS Safety Report 6365602-4 (Version None)
Quarter: 2009Q3

REPORT INFORMATION
  Report Type: 
  Country: None (occurrence: None)
  Receive Date: 20090919
  Receipt Date: 20090814
  Transmission Date: 20100115
  Serious: No
  Sender: FDA-Public Use
  Company Number: US-ABBOTT-09P-163-0592234-00

PATIENT
  Sex: Female
  Weight: 90.8 kg

DRUGS (17)
  1. HUMIRA [Suspect]
     Indication: ANKYLOSING SPONDYLITIS
     Dates: start: 20090323
  2. HUMIRA [Suspect]
     Dosage: HUMIRA PRE-FILLED SRYINGE
  3. NABUMETONE [Concomitant]
     Indication: INFLAMMATION
  4. LISINOPRIL [Concomitant]
     Indication: HYPERTENSION
  5. SIMVASTATIN [Concomitant]
     Indication: BLOOD CHOLESTEROL INCREASED
  6. NORTRIPTYLINE HCL [Concomitant]
     Indication: INSOMNIA
  7. PREDNISONE [Concomitant]
     Indication: PAIN
  8. PREDNISONE [Concomitant]
     Indication: ANKYLOSING SPONDYLITIS
  9. PREDNISONE [Concomitant]
     Indication: ARTHRITIS
  10. SPIRONOLACTONE/HYDROCHLOROTHIAZIDE [Concomitant]
     Indication: DRUG USE FOR UNKNOWN INDICATION
  11. METHADONE HCL [Concomitant]
     Indication: PAIN
  12. PANTOPRAZOLE SODIUM [Concomitant]
     Indication: GASTROOESOPHAGEAL REFLUX DISEASE
  13. XANAX [Concomitant]
     Indication: ANXIETY
  14. CARISOPRODOL [Concomitant]
     Indication: PAIN
  15. SENNA [Concomitant]
     Indication: CONSTIPATION
  16. HYDROCODONE [Concomitant]
     Indication: PAIN
  17. ENBREL [Concomitant]
     Indication: ANKYLOSING SPONDYLITIS

REACTIONS (5)
  - CHEST PAIN [None]
  - JOINT SWELLING [None]
  - OEDEMA PERIPHERAL [None]
  - PRURITUS [None]
  - RASH [None]
